FAERS Safety Report 8238358-8 (Version None)
Quarter: 2012Q1

REPORT INFORMATION
  Report Type: 
  Country: None (occurrence: None)
  Receive Date: 20120327
  Receipt Date: 20120314
  Transmission Date: 20120608
  Serious: Yes (Other)
  Sender: FDA-Public Use
  Company Number: JP-ROCHE-1050897

PATIENT
  Sex: Male
  Weight: 62.9 kg

DRUGS (9)
  1. LIVACT [Concomitant]
     Indication: HEPATITIS C
     Route: 048
     Dates: start: 20110705, end: 20111115
  2. LOXONIN [Concomitant]
     Indication: PYREXIA
     Route: 048
  3. PEGASYS [Suspect]
     Indication: HEPATITIS C
     Route: 058
     Dates: start: 20111102, end: 20111227
  4. LOSARTAN POTASSIUM [Concomitant]
     Indication: HYPERTENSION
     Route: 048
     Dates: start: 20110831, end: 20111226
  5. APIDRA [Concomitant]
     Indication: TYPE 2 DIABETES MELLITUS
     Route: 058
     Dates: start: 20110408
  6. COPEGUS [Suspect]
     Route: 048
     Dates: start: 20111213, end: 20111227
  7. COPEGUS [Suspect]
     Indication: HEPATITIS C
     Route: 048
     Dates: start: 20111102, end: 20111213
  8. MAGNESIUM SULFATE [Concomitant]
     Indication: CONSTIPATION
     Route: 048
     Dates: start: 20110609
  9. MUCOSTA [Concomitant]
     Indication: PYREXIA
     Route: 048
     Dates: start: 20111102

REACTIONS (5)
  - HEPATIC CONGESTION [None]
  - MALAISE [None]
  - RENAL FAILURE ACUTE [None]
  - CARDIAC FAILURE [None]
  - ANAEMIA [None]
